FAERS Safety Report 18951327 (Version 24)
Quarter: 2022Q4

REPORT INFORMATION
  Report Type: Spontaneous
  Country: CA (occurrence: CA)
  Receive Date: 20210228
  Receipt Date: 20221031
  Transmission Date: 20230112
  Serious: Yes (Other)
  Sender: FDA-Public Use
  Company Number: CA-CELLTRION INC.-2020CA023764

PATIENT

DRUGS (18)
  1. INFLECTRA [Suspect]
     Active Substance: INFLIXIMAB-DYYB
     Indication: Crohn^s disease
     Dosage: 300 MG, 0, 2, 6 THEN EVERY 8 WEEKS
     Route: 042
     Dates: start: 20200515
  2. INFLECTRA [Suspect]
     Active Substance: INFLIXIMAB-DYYB
     Dosage: 300MG,Q 0, 2, 6 WEEKS, THEN EVERY 8 WEEKS
     Route: 042
     Dates: start: 20200515, end: 20210412
  3. INFLECTRA [Suspect]
     Active Substance: INFLIXIMAB-DYYB
     Dosage: 300 MG, 0, 2, 6 THEN EVERY 8 WEEKS
     Route: 042
     Dates: start: 20200529
  4. INFLECTRA [Suspect]
     Active Substance: INFLIXIMAB-DYYB
     Dosage: 300 MG, 0, 2, 6 THEN EVERY 8 WEEKS
     Route: 042
     Dates: start: 20200625
  5. INFLECTRA [Suspect]
     Active Substance: INFLIXIMAB-DYYB
     Dosage: 300 MG, 0, 2, 6 THEN EVERY 8 WEEKS
     Route: 042
     Dates: start: 20200820
  6. INFLECTRA [Suspect]
     Active Substance: INFLIXIMAB-DYYB
     Dosage: 300 MG, 0, 2, 6 THEN EVERY 8 WEEKS
     Route: 042
     Dates: start: 20201016
  7. INFLECTRA [Suspect]
     Active Substance: INFLIXIMAB-DYYB
     Dosage: 300 MG, 0, 2, 6 THEN EVERY 8 WEEKS
     Route: 042
     Dates: start: 20201224
  8. INFLECTRA [Suspect]
     Active Substance: INFLIXIMAB-DYYB
     Dosage: 300 MG, 0, 2, 6 THEN EVERY 8 WEEKS
     Route: 042
     Dates: start: 20210218
  9. INFLECTRA [Suspect]
     Active Substance: INFLIXIMAB-DYYB
     Dosage: 300 MG, 0, 2, 6 THEN EVERY 8 WEEKS
     Route: 042
     Dates: start: 20210412
  10. INFLECTRA [Suspect]
     Active Substance: INFLIXIMAB-DYYB
     Dosage: 400 MG, EVERY 8 WEEKS
     Route: 042
     Dates: start: 20210611
  11. INFLECTRA [Suspect]
     Active Substance: INFLIXIMAB-DYYB
     Dosage: 400 MG, EVERY 8 WEEKS
     Route: 042
     Dates: start: 20210805
  12. INFLECTRA [Suspect]
     Active Substance: INFLIXIMAB-DYYB
     Dosage: 400 MG, EVERY 8 WEEKS
     Route: 042
     Dates: start: 20210805
  13. INFLECTRA [Suspect]
     Active Substance: INFLIXIMAB-DYYB
     Dosage: 400 MG, EVERY 8 WEEKS
     Route: 042
     Dates: start: 20211019
  14. INFLECTRA [Suspect]
     Active Substance: INFLIXIMAB-DYYB
     Dosage: 400 MG, EVERY 8 WEEKS
     Route: 042
     Dates: start: 20211216
  15. INFLECTRA [Suspect]
     Active Substance: INFLIXIMAB-DYYB
     Dosage: 400 MG, EVERY 8 WEEKS
     Route: 042
     Dates: start: 20220211
  16. INFLECTRA [Suspect]
     Active Substance: INFLIXIMAB-DYYB
     Dosage: 400 MG, EVERY 8 WEEKS
     Route: 042
     Dates: start: 20220504
  17. INFLECTRA [Suspect]
     Active Substance: INFLIXIMAB-DYYB
     Dosage: 400 MG, EVERY 8 WEEKS
     Route: 042
     Dates: start: 20220628
  18. INFLECTRA [Suspect]
     Active Substance: INFLIXIMAB-DYYB
     Dosage: 400 MG, EVERY 8 WEEKS
     Route: 042
     Dates: start: 20221020

REACTIONS (21)
  - Weight increased [Unknown]
  - Intervertebral disc protrusion [Recovering/Resolving]
  - Spinal operation [Unknown]
  - Therapeutic product effect incomplete [Unknown]
  - Off label use [Unknown]
  - Intentional product use issue [Unknown]
  - Off label use [Unknown]
  - Inappropriate schedule of product administration [Unknown]
  - Drug level below therapeutic [Recovering/Resolving]
  - Faecal calprotectin increased [Unknown]
  - Weight decreased [Unknown]
  - Migraine [Recovered/Resolved]
  - Rhinorrhoea [Recovered/Resolved]
  - Oropharyngeal pain [Recovered/Resolved]
  - Arthralgia [Unknown]
  - Condition aggravated [Recovering/Resolving]
  - Drug intolerance [Not Recovered/Not Resolved]
  - Sciatica [Not Recovered/Not Resolved]
  - Gait disturbance [Not Recovered/Not Resolved]
  - Back pain [Not Recovered/Not Resolved]
  - Mobility decreased [Unknown]

NARRATIVE: CASE EVENT DATE: 20200625
